FAERS Safety Report 6344844-8 (Version None)
Quarter: 2009Q3

REPORT INFORMATION
  Report Type: 
  Country: None (occurrence: None)
  Receive Date: 20090821
  Receipt Date: 20090603
  Transmission Date: 20100115
  Serious: No
  Sender: FDA-Public Use
  Company Number: 8047464

PATIENT
  Age: 33 Year
  Sex: Female
  Weight: 52.2 kg

DRUGS (1)
  1. CIMZIA [Suspect]
     Indication: CROHN'S DISEASE
     Dosage: 400 MG SC
     Route: 058
     Dates: start: 20090521

REACTIONS (3)
  - PAIN OF SKIN [None]
  - PRURITUS GENERALISED [None]
  - RASH GENERALISED [None]
